FAERS Safety Report 14193307 (Version 4)
Quarter: 2017Q4

REPORT INFORMATION
  Report Type: Spontaneous
  Country: GB (occurrence: GB)
  Receive Date: 20171116
  Receipt Date: 20171120
  Transmission Date: 20180321
  Serious: Yes (Other)
  Sender: FDA-Public Use
  Company Number: GB-CONCORDIA PHARMACEUTICALS INC.-GSH201603-001534

PATIENT
  Age: 60 Year
  Sex: Male

DRUGS (4)
  1. PREDNISOLONE. [Suspect]
     Active Substance: PREDNISOLONE
  2. MYFENAX [Suspect]
     Active Substance: MYCOPHENOLATE MOFETIL
  3. DEXIMUNE [Suspect]
     Active Substance: CYCLOSPORINE
  4. DEXIMUNE [Suspect]
     Active Substance: CYCLOSPORINE

REACTIONS (2)
  - Renal failure [Unknown]
  - Kidney infection [Unknown]
